FAERS Safety Report 4606970-0 (Version None)
Quarter: 2005Q1

REPORT INFORMATION
  Report Type: 
  Country: None (occurrence: None)
  Receive Date: 20050309
  Receipt Date: 20050224
  Transmission Date: 20050727
  Serious: Yes (Hospitalization)
  Sender: FDA-Public Use
  Company Number: 2005037116

PATIENT
  Age: 74 Year
  Sex: Female
  Weight: 52.6173 kg

DRUGS (6)
  1. CELEBREX [Suspect]
     Indication: RHEUMATOID ARTHRITIS
     Dosage: 200 MG (200 MG, 1 IN 1 D), ORAL
     Route: 048
     Dates: start: 20000101
  2. ASPIRIN [Suspect]
     Indication: ILL-DEFINED DISORDER
     Dosage: 81 MG (81 MG, 1 IN 1 CYCLICAL), ORAL
     Route: 048
     Dates: start: 20040101, end: 20040101
  3. METHYLPREDNISOLONE [Concomitant]
  4. VITAMINS (VITAMINS) [Concomitant]
  5. CALCIUM (CALCIUM) [Concomitant]
  6. METHOTREXATE [Concomitant]

REACTIONS (4)
  - COLONIC HAEMORRHAGE [None]
  - DRUG EFFECT DECREASED [None]
  - GASTRIC HAEMORRHAGE [None]
  - PAIN [None]
